FAERS Safety Report 6270687-X (Version None)
Quarter: 2009Q3

REPORT INFORMATION
  Report Type: 
  Country: None (occurrence: None)
  Receive Date: 20090714
  Receipt Date: 20090630
  Transmission Date: 20100115
  Serious: Yes (Life-Threatening, Hospitalization)
  Sender: FDA-Public Use
  Company Number: 2009-01100

PATIENT
  Age: 65 Year
  Sex: Female
  Weight: 45 kg

DRUGS (9)
  1. VELCADE [Suspect]
     Indication: MULTIPLE MYELOMA
     Dosage: 1.7 MG, INTRAVENOUS
     Route: 042
     Dates: start: 20081014, end: 20090306
  2. ASPIRIN [Suspect]
     Indication: DRUG USE FOR UNKNOWN INDICATION
     Dosage: 100 MG, ORAL
     Route: 048
     Dates: end: 20090317
  3. DECADRON [Concomitant]
  4. ROCALTROL [Concomitant]
  5. CALCIUM LACTATE (CALCIUM LACTATE) [Concomitant]
  6. LOXONIN (LOXOPROFEN SODIUM) [Concomitant]
  7. METHYCOBAL (MECOBALAMIN) [Concomitant]
  8. ACYCLOVIR [Concomitant]
  9. RABEPRAZOLE SODIUM [Concomitant]

REACTIONS (5)
  - CEREBRAL HAEMORRHAGE [None]
  - CONDITION AGGRAVATED [None]
  - HERPES ZOSTER [None]
  - MEMORY IMPAIRMENT [None]
  - OSTEOPOROSIS [None]
